FAERS Safety Report 8591948-5 (Version None)
Quarter: 2012Q3

REPORT INFORMATION
  Report Type: 
  Country: None (occurrence: None)
  Receive Date: 20120814
  Receipt Date: 20120809
  Transmission Date: 20120928
  Serious: Yes (Other)
  Sender: FDA-Public Use
  Company Number: CA-PFIZER INC-2012195742

PATIENT
  Sex: Female

DRUGS (1)
  1. VARENICLINE [Suspect]
     Dosage: UNK
     Dates: start: 20120806

REACTIONS (3)
  - FEELING ABNORMAL [None]
  - BLOOD GLUCOSE INCREASED [None]
  - NERVOUSNESS [None]
